FAERS Safety Report 13343673 (Version 2)
Quarter: 2017Q2

REPORT INFORMATION
  Report Type: Spontaneous
  Country: US (occurrence: US)
  Receive Date: 20170316
  Receipt Date: 20170615
  Transmission Date: 20170830
  Serious: Yes (Other)
  Sender: FDA-Public Use
  Company Number: US-BAYER-2017-049447

PATIENT
  Age: 64 Year
  Sex: Female

DRUGS (1)
  1. CLIMARA [Suspect]
     Active Substance: ESTRADIOL
     Dosage: 0.1 MG, OW
     Route: 062

REACTIONS (3)
  - Product adhesion issue [None]
  - Product physical issue [None]
  - Uterine haemorrhage [Not Recovered/Not Resolved]
